FAERS Safety Report 11858895 (Version 2)
Quarter: 2016Q1

REPORT INFORMATION
  Report Type: Report from Study
  Country: US (occurrence: US)
  Receive Date: 20151222
  Receipt Date: 20160215
  Transmission Date: 20160526
  Serious: Yes (Hospitalization)
  Sender: FDA-Public Use
  Company Number: US-GILEAD-2015-0189101

PATIENT
  Age: 72 Year
  Sex: Male

DRUGS (2)
  1. AMBRISENTAN [Suspect]
     Active Substance: AMBRISENTAN
     Indication: VENOOCCLUSIVE DISEASE
     Dosage: 5 MG, QD
     Route: 065
     Dates: start: 20151105
  2. AMBRISENTAN [Suspect]
     Active Substance: AMBRISENTAN
     Indication: PULMONARY ARTERIAL HYPERTENSION
     Dosage: 10 MG, QD
     Route: 065
     Dates: start: 20120814, end: 20151207

REACTIONS (7)
  - Drug intolerance [Recovered/Resolved]
  - Heart rate decreased [Unknown]
  - Fluid retention [Unknown]
  - Weight increased [Unknown]
  - Hypotension [Unknown]
  - Fatigue [Recovered/Resolved]
  - Bacterial infection [Recovered/Resolved]

NARRATIVE: CASE EVENT DATE: 20151207
